FAERS Safety Report 23250433 (Version 1)
Quarter: 2023Q4

REPORT INFORMATION
  Report Type: Report from Study
  Country: JP (occurrence: JP)
  Receive Date: 20231201
  Receipt Date: 20231201
  Transmission Date: 20240109
  Serious: Yes (Other)
  Sender: FDA-Public Use
  Company Number: JP-RECORDATI RARE DISEASE INC.-2021001846

PATIENT
  Age: 5 Day
  Sex: Male

DRUGS (16)
  1. NEOPROFEN [Suspect]
     Active Substance: IBUPROFEN LYSINE
     Indication: Patent ductus arteriosus
     Dosage: 6 MG
     Route: 042
     Dates: start: 20191011, end: 20191011
  2. NEOPROFEN [Suspect]
     Active Substance: IBUPROFEN LYSINE
     Dosage: 3 MG
     Route: 042
     Dates: start: 20191012, end: 20191012
  3. NEOPROFEN [Suspect]
     Active Substance: IBUPROFEN LYSINE
     Dosage: 3 MG
     Route: 042
     Dates: start: 20191013, end: 20191013
  4. NEOPROFEN [Suspect]
     Active Substance: IBUPROFEN LYSINE
     Dosage: 6 MG
     Route: 042
     Dates: start: 20191016, end: 20191016
  5. NEOPROFEN [Suspect]
     Active Substance: IBUPROFEN LYSINE
     Dosage: 3 MG
     Route: 042
     Dates: start: 20191017, end: 20191017
  6. NEOPROFEN [Suspect]
     Active Substance: IBUPROFEN LYSINE
     Dosage: 3 MG
     Route: 042
     Dates: start: 20191018, end: 20191018
  7. CALCIUM GLUCONATE [Concomitant]
     Active Substance: CALCIUM GLUCONATE
     Indication: Hypocalcaemia
     Dosage: UNK
     Route: 042
     Dates: start: 20191007, end: 20191022
  8. SODIUM PHOSPHATE [Concomitant]
     Active Substance: SODIUM PHOSPHATE
     Indication: Hypophosphataemia
     Dosage: UNK
     Route: 042
     Dates: start: 20191010, end: 20191023
  9. SAXIZON [Concomitant]
     Active Substance: HYDROCORTISONE SODIUM SUCCINATE
     Indication: Cytokine storm
     Dosage: UNK
     Route: 042
     Dates: start: 20191008, end: 20191023
  10. VITAJECT [CYANOCOBALAMIN;PYRIDOXINE HYDROCHLORIDE;THIAMINE HYDROCHLORI [Concomitant]
     Indication: Vitamin supplementation
     Dosage: UNK
     Route: 042
     Dates: start: 20191010, end: 20191023
  11. MINERAMIC [Concomitant]
     Indication: Trace element deficiency
     Dosage: UNK
     Route: 042
     Dates: start: 20191010, end: 20191023
  12. GLUACETO 35 [Concomitant]
     Indication: Hypoglycaemia
     Dosage: UNK
     Route: 042
     Dates: start: 20191010, end: 20191023
  13. PLEAMIN P [Concomitant]
     Indication: Nutritional supplementation
     Dosage: UNK
     Route: 042
     Dates: start: 20191010, end: 20191023
  14. SOYBEAN OIL [Concomitant]
     Active Substance: SOYBEAN OIL
     Indication: Nutritional supplementation
     Dosage: UNK
     Route: 042
     Dates: start: 20191010, end: 20191023
  15. DEXTROSE [Concomitant]
     Active Substance: DEXTROSE\DEXTROSE MONOHYDRATE
     Indication: Hypoglycaemia
     Dosage: UNK
     Route: 042
     Dates: start: 20191007, end: 20191023
  16. MENATETRENONE [Concomitant]
     Active Substance: MENATETRENONE
     Indication: Vitamin supplementation
     Dosage: UNK
     Route: 042
     Dates: start: 20191012, end: 20191012

REACTIONS (2)
  - Meconium ileus [Recovered/Resolved]
  - Renal disorder [Recovered/Resolved]

NARRATIVE: CASE EVENT DATE: 20191012
